FAERS Safety Report 13461333 (Version 1)
Quarter: 2017Q2

REPORT INFORMATION
  Report Type: Spontaneous
  Country: NL (occurrence: NL)
  Receive Date: 20170420
  Receipt Date: 20170420
  Transmission Date: 20170830
  Serious: Yes (Life-Threatening, Hospitalization)
  Sender: FDA-Public Use
  Company Number: NL-STRIDES ARCOLAB LIMITED-2017SP006657

PATIENT

DRUGS (10)
  1. FERROUS GLUCONATE [Suspect]
     Active Substance: FERROUS GLUCONATE
     Dosage: 1000 MG, ONE-MONTH INTERVAL BETWEEN THE SECOND AND THIRD
     Route: 042
  2. SODIUM GLYCEROPHOSPHATE [Suspect]
     Active Substance: SODIUM GLYCEROPHOSPHATE
     Dosage: 20 ML, UNKNOWN
     Route: 042
  3. LEVOTHYROXINE. [Concomitant]
     Active Substance: LEVOTHYROXINE
     Dosage: 100 ?G DAILY
     Route: 065
  4. FERROUS GLUCONATE [Suspect]
     Active Substance: FERROUS GLUCONATE
     Indication: ANAEMIA
     Dosage: 1000 MG, TWO-WEEK INTERVAL BETWEEN THE FIRST TWO INFUSIONS
     Route: 042
  5. SODIUM GLYCEROPHOSPHATE [Suspect]
     Active Substance: SODIUM GLYCEROPHOSPHATE
     Indication: HYPOPHOSPHATAEMIA
     Dosage: 40 ML, UNKNOWN
     Route: 042
  6. SODIUM GLYCEROPHOSPHATE [Suspect]
     Active Substance: SODIUM GLYCEROPHOSPHATE
     Dosage: 20 ML, UNKNOWN
     Route: 042
  7. PHOSPHATE                          /01318702/ [Suspect]
     Active Substance: SODIUM PHOSPHATE
     Dosage: 20 ML, UNK
     Route: 048
  8. LEVOTHYROXINE. [Concomitant]
     Active Substance: LEVOTHYROXINE
     Indication: HYPOTHYROIDISM
     Dosage: 50 ?G, QD
     Route: 048
  9. PHOSPHATE /01318702/ [Suspect]
     Active Substance: SODIUM PHOSPHATE
     Indication: HYPOPHOSPHATAEMIA
     Dosage: 15 ML, TID
     Route: 048
  10. RED BLOOD CELLS [Concomitant]
     Active Substance: HUMAN RED BLOOD CELL
     Indication: ANAEMIA
     Dosage: 3 UNITS, UNK

REACTIONS (4)
  - Hypophosphataemia [Recovered/Resolved]
  - Fatigue [Recovered/Resolved]
  - Depression [Recovered/Resolved]
  - Asthenia [Recovered/Resolved]
